FAERS Safety Report 22876101 (Version 2)
Quarter: 2023Q4

REPORT INFORMATION
  Report Type: Spontaneous
  Country: US (occurrence: None)
  Receive Date: 20230829
  Receipt Date: 20231109
  Transmission Date: 20240109
  Serious: No
  Sender: FDA-Public Use
  Company Number: 2023A195612

PATIENT
  Sex: Male

DRUGS (1)
  1. BREZTRI [Suspect]
     Active Substance: BUDESONIDE\FORMOTEROL\GLYCOPYRROLATE
     Indication: Asthma
     Dosage: 160/9/4.8 MCG, 2 PUFF ORAL UNKNOWN
     Route: 055
     Dates: start: 20220201, end: 20230823

REACTIONS (2)
  - Device delivery system issue [Unknown]
  - Product storage error [Unknown]
